FAERS Safety Report 16327148 (Version 1)
Quarter: 2019Q2

REPORT INFORMATION
  Report Type: Spontaneous
  Country: US (occurrence: US)
  Receive Date: 20190517
  Receipt Date: 20190517
  Transmission Date: 20190711
  Serious: No
  Sender: FDA-Public Use
  Company Number: US-SA-2019SA136420

PATIENT
  Age: 58 Year
  Sex: Male

DRUGS (1)
  1. LANTUS SOLOSTAR [Suspect]
     Active Substance: INSULIN GLARGINE
     Dosage: 18 UNITS IN THE MORNING AND 35 UNITS IN THE EVENING
     Route: 065

REACTIONS (3)
  - Inappropriate schedule of product administration [Unknown]
  - Visual impairment [Unknown]
  - Product use complaint [Unknown]
